FAERS Safety Report 10066418 (Version 1)
Quarter: 2014Q2

REPORT INFORMATION
  Report Type: Spontaneous
  Country: US (occurrence: None)
  Receive Date: 20140401
  Receipt Date: 20140401
  Transmission Date: 20141212
  Serious: Yes (Other)
  Sender: FDA-Public Use
  Company Number: PHEH2013US008295

PATIENT
  Age: 69 Year
  Sex: Male
  Weight: 62 kg

DRUGS (4)
  1. EXELON PATCH [Suspect]
     Indication: PARKINSON^S DISEASE
     Route: 062
     Dates: start: 20130406, end: 20130409
  2. CRESTOR (ROSUVASTATIN CALCIUM) [Concomitant]
  3. SINEMET (CARBIDOPA, LEVODOPA) [Concomitant]
  4. SYNTHROID (LEVOTHYROXINE SODIUM) [Concomitant]

REACTIONS (2)
  - Diarrhoea [None]
  - Hallucination [None]
